FAERS Safety Report 8491020-9 (Version None)
Quarter: 2012Q3

REPORT INFORMATION
  Report Type: 
  Country: None (occurrence: None)
  Receive Date: 20120706
  Receipt Date: 20120702
  Transmission Date: 20120928
  Serious: Yes (Life-Threatening, Other)
  Sender: FDA-Public Use
  Company Number: US-BAYER-2010-000442

PATIENT
  Sex: Female

DRUGS (3)
  1. YASMIN [Suspect]
     Dosage: UNK
     Dates: start: 20070301, end: 20080101
  2. MOTRIN [Concomitant]
     Dosage: 600 MG, BID
     Route: 048
  3. ALBUTEROL [Concomitant]
     Route: 055

REACTIONS (3)
  - THROMBOSIS [None]
  - GALLBLADDER INJURY [None]
  - DEEP VEIN THROMBOSIS [None]
